FAERS Safety Report 6186209-8 (Version None)
Quarter: 2009Q2

REPORT INFORMATION
  Report Type: 
  Country: None (occurrence: None)
  Receive Date: 20090507
  Receipt Date: 20090507
  Transmission Date: 20091009
  Serious: Yes (Other)
  Sender: FDA-Public Use
  Company Number: None

PATIENT
  Age: 62 Year
  Sex: Female
  Weight: 61.2356 kg

DRUGS (1)
  1. LEVAQUIN [Suspect]
     Indication: SINUSITIS
     Dosage: 500 MG ONCE PER DAY PO
     Route: 048
     Dates: start: 20090404, end: 20090413

REACTIONS (7)
  - ABDOMINAL PAIN LOWER [None]
  - ARTHRALGIA [None]
  - BACK PAIN [None]
  - FALL [None]
  - GAIT DISTURBANCE [None]
  - JOINT SWELLING [None]
  - MIGRAINE [None]
